FAERS Safety Report 11875093 (Version 1)
Quarter: 2015Q4

REPORT INFORMATION
  Report Type: Spontaneous
  Country: US (occurrence: None)
  Receive Date: 20151228
  Receipt Date: 20151228
  Transmission Date: 20160305
  Serious: Yes (Hospitalization)
  Sender: FDA-Public Use
  Company Number: None

PATIENT
  Age: 89 Year
  Sex: Male

DRUGS (2)
  1. OXYCODONE [Suspect]
     Active Substance: OXYCODONE
     Indication: PAIN
     Route: 048
     Dates: start: 20090420
  2. TRAZODONE [Suspect]
     Active Substance: TRAZODONE HYDROCHLORIDE
     Indication: PAIN
     Route: 048
     Dates: start: 20000207

REACTIONS (11)
  - Syncope [None]
  - Mental status changes [None]
  - Hypoaesthesia [None]
  - Anxiety [None]
  - Incorrect dose administered [None]
  - Muscular weakness [None]
  - Miosis [None]
  - Impaired driving ability [None]
  - Sedation [None]
  - Toxicologic test abnormal [None]
  - Sensory loss [None]

NARRATIVE: CASE EVENT DATE: 20151211
